FAERS Safety Report 7609383-2 (Version None)
Quarter: 2011Q3

REPORT INFORMATION
  Report Type: 
  Country: None (occurrence: None)
  Receive Date: 20110714
  Receipt Date: 20110711
  Transmission Date: 20111222
  Serious: Yes (Death, Hospitalization, Other)
  Sender: FDA-Public Use
  Company Number: PHEH2008US02535

PATIENT
  Sex: Female

DRUGS (14)
  1. AREDIA [Suspect]
     Dosage: UNK
  2. OXYFAST [Concomitant]
  3. MYCELEX [Concomitant]
  4. PROTONIX [Concomitant]
  5. FEMARA [Concomitant]
  6. COLACE [Concomitant]
  7. COMPAZINE [Concomitant]
  8. ZOLOFT [Concomitant]
  9. MEGACE [Concomitant]
  10. ELAVIL [Concomitant]
  11. OXYCONTIN [Concomitant]
  12. IBUPROFEN [Concomitant]
  13. SENOKOT [Concomitant]
  14. PHENERGAN HCL [Concomitant]

REACTIONS (44)
  - DEFORMITY [None]
  - HYPOAESTHESIA [None]
  - SCIATICA [None]
  - OVARIAN CYST [None]
  - ELECTROCARDIOGRAM T WAVE INVERSION [None]
  - CHEST PAIN [None]
  - MUSCULOSKELETAL PAIN [None]
  - PULMONARY GRANULOMA [None]
  - PAIN [None]
  - INTERVERTEBRAL DISC PROTRUSION [None]
  - BONE LESION [None]
  - NAUSEA [None]
  - URINARY TRACT INFECTION [None]
  - MYALGIA [None]
  - INJURY [None]
  - VOMITING [None]
  - COMPRESSION FRACTURE [None]
  - CARDIAC MURMUR [None]
  - DIZZINESS [None]
  - MASTOIDITIS [None]
  - NEOPLASM PROGRESSION [None]
  - ANAEMIA OF CHRONIC DISEASE [None]
  - OSTEOARTHRITIS [None]
  - ARTHRALGIA [None]
  - DEHYDRATION [None]
  - INFECTION [None]
  - PHYSICAL DISABILITY [None]
  - OSTEOMYELITIS [None]
  - METASTATIC NEOPLASM [None]
  - CATHETER SITE HAEMORRHAGE [None]
  - SPINAL OSTEOARTHRITIS [None]
  - ANXIETY [None]
  - BACK PAIN [None]
  - ILEUS [None]
  - DIAPHRAGMATIC DISORDER [None]
  - DEATH [None]
  - METASTASES TO LIVER [None]
  - METASTASES TO BONE [None]
  - OSTEONECROSIS OF JAW [None]
  - PAIN IN JAW [None]
  - PARAESTHESIA [None]
  - NEOPLASM MALIGNANT [None]
  - CONSTIPATION [None]
  - ABDOMINAL PAIN [None]
